FAERS Safety Report 19224866 (Version 8)
Quarter: 2022Q1

REPORT INFORMATION
  Report Type: Report from Study
  Country: None (occurrence: GB)
  Receive Date: 20210506
  Receipt Date: 20220215
  Transmission Date: 20220423
  Serious: Yes (Hospitalization, Other)
  Sender: FDA-Public Use
  Company Number: GB-AKCEA THERAPEUTICS, INC.-2021IS001344

PATIENT
  Age: 84 Year
  Sex: Female

DRUGS (13)
  1. TEGSEDI [Suspect]
     Active Substance: INOTERSEN SODIUM
     Indication: Hereditary neuropathic amyloidosis
     Route: 058
     Dates: start: 20200424, end: 20210416
  2. DEVICE [Suspect]
     Active Substance: DEVICE
  3. ALBUTEROL [Concomitant]
     Active Substance: ALBUTEROL
     Route: 065
  4. BUMETANIDE [Concomitant]
     Active Substance: BUMETANIDE
     Route: 065
  5. EDOXABAN TOSYLATE [Concomitant]
     Active Substance: EDOXABAN TOSYLATE
     Route: 065
  6. BISOPROLOL [Concomitant]
     Active Substance: BISOPROLOL
     Route: 065
  7. EDOXABAN [Concomitant]
     Active Substance: EDOXABAN
     Route: 065
  8. HYALURONATE SODIUM [Concomitant]
     Active Substance: HYALURONATE SODIUM
     Route: 047
  9. LOSARTAN [Concomitant]
     Active Substance: LOSARTAN
     Route: 065
  10. LATANOPROST / TIMOLOL [Concomitant]
     Route: 047
  11. TEGSEDI [Suspect]
     Active Substance: INOTERSEN SODIUM
     Route: 058
     Dates: start: 20210514
  12. TEGSEDI [Suspect]
     Active Substance: INOTERSEN SODIUM
     Route: 058
     Dates: start: 202111
  13. TEGSEDI [Suspect]
     Active Substance: INOTERSEN SODIUM
     Route: 058
     Dates: start: 202201, end: 20220114

REACTIONS (6)
  - Cardiac failure [Unknown]
  - Peripheral swelling [Recovering/Resolving]
  - Mobility decreased [Unknown]
  - Platelet count increased [Unknown]
  - General physical health deterioration [Unknown]
  - Pain in extremity [Unknown]

NARRATIVE: CASE EVENT DATE: 20210423
